FAERS Safety Report 24973076 (Version 1)
Quarter: 2025Q1

REPORT INFORMATION
  Report Type: Spontaneous
  Country: ES (occurrence: ES)
  Receive Date: 20250216
  Receipt Date: 20250216
  Transmission Date: 20250408
  Serious: Yes (Hospitalization, Other)
  Sender: AUROBINDO
  Company Number: ES-AEMPS-1627531

PATIENT
  Age: 26 Year
  Sex: Female

DRUGS (3)
  1. ACETYLCYSTEINE [Suspect]
     Active Substance: ACETYLCYSTEINE
     Indication: Pharyngitis
     Dosage: 600 MILLIGRAM, ONCE A DAY
     Route: 065
     Dates: start: 20241121, end: 20241122
  2. IBUPROFEN ARGININE [Suspect]
     Active Substance: IBUPROFEN ARGININE
     Indication: Pharyngitis
     Route: 065
     Dates: start: 20241121, end: 20241122
  3. FOSTER [Suspect]
     Active Substance: BECLOMETHASONE\FORMOTEROL
     Indication: Pharyngitis
     Route: 065
     Dates: start: 20241121, end: 20241121

REACTIONS (4)
  - Dyspnoea [Unknown]
  - Eyelid oedema [Unknown]
  - Face oedema [Unknown]
  - Urticaria [Unknown]

NARRATIVE: CASE EVENT DATE: 20241121
